FAERS Safety Report 6713884-9 (Version None)
Quarter: 2010Q2

REPORT INFORMATION
  Report Type: 
  Country: None (occurrence: None)
  Receive Date: 20100506
  Receipt Date: 20100430
  Transmission Date: 20101027
  Serious: Yes (Other)
  Sender: FDA-Public Use
  Company Number: US-PFIZER INC-2010055647

PATIENT
  Sex: Female
  Weight: 44 kg

DRUGS (2)
  1. ALPRAZOLAM [Suspect]
     Indication: ANXIETY
     Dosage: 2 MG, 2X/DAY
     Route: 048
     Dates: start: 20100429
  2. TRAZODONE [Concomitant]
     Dosage: UNK

REACTIONS (3)
  - APHTHOUS STOMATITIS [None]
  - OESOPHAGEAL PAIN [None]
  - REACTION TO AZO-DYES [None]
